FAERS Safety Report 13655080 (Version 6)
Quarter: 2018Q1

REPORT INFORMATION
  Report Type: Spontaneous
  Country: JP (occurrence: JP)
  Receive Date: 20170615
  Receipt Date: 20180316
  Transmission Date: 20180508
  Serious: Yes (Death, Other)
  Sender: FDA-Public Use
  Company Number: JP-009507513-1706JPN000981J

PATIENT
  Age: 61 Year
  Sex: Male
  Weight: 72 kg

DRUGS (13)
  1. BAYASPIRIN [Suspect]
     Active Substance: ASPIRIN
     Indication: ANGINA PECTORIS
     Dosage: 100 DF, QD
     Route: 048
     Dates: start: 20170411, end: 20170610
  2. COVERSYL [Suspect]
     Active Substance: PERINDOPRIL
     Indication: HYPERTENSION
     Dosage: 4 MG, QD
     Route: 048
     Dates: start: 20170411, end: 20170610
  3. KEYTRUDA [Suspect]
     Active Substance: PEMBROLIZUMAB
     Indication: LUNG ADENOCARCINOMA STAGE IV
     Dosage: 200 MG, Q3W
     Route: 041
     Dates: start: 20170411, end: 20170523
  4. LANSOPRAZOLE OD [Suspect]
     Active Substance: LANSOPRAZOLE
     Indication: DIARRHOEA
     Dosage: 15 MG, QD
     Route: 048
     Dates: start: 20170411, end: 20170610
  5. OXYCONTIN [Suspect]
     Active Substance: OXYCODONE HYDROCHLORIDE
     Indication: ANALGESIC THERAPY
     Dosage: 15 MG, BID
     Route: 048
     Dates: start: 20170411, end: 20170610
  6. CRESTOR [Suspect]
     Active Substance: ROSUVASTATIN CALCIUM
     Indication: DYSLIPIDAEMIA
     Dosage: 2.5 MG, QD
     Route: 048
     Dates: start: 20170411, end: 20170610
  7. LOXOPROFEN NA [Suspect]
     Active Substance: LOXOPROFEN SODIUM
     Indication: PYREXIA
     Dosage: 60 MG, TID
     Route: 042
     Dates: start: 20170411, end: 20170610
  8. BISONO [Suspect]
     Active Substance: BISOPROLOL
     Indication: ANGINA PECTORIS
     Dosage: 4 MG, QD
     Route: 061
     Dates: start: 20170411, end: 20170610
  9. ADALAT CC [Suspect]
     Active Substance: NIFEDIPINE
     Indication: HYPERTENSION
     Dosage: 10 MG, QD
     Route: 048
     Dates: start: 20170411, end: 20170610
  10. CALONAL [Suspect]
     Active Substance: ACETAMINOPHEN
     Indication: PYREXIA
     Dosage: 500 MG, TID
     Route: 048
     Dates: start: 20170411, end: 20170610
  11. MILMAG [Suspect]
     Active Substance: MAGNESIUM HYDROXIDE
     Indication: CONSTIPATION
     Dosage: 350 MG, TID
     Route: 048
     Dates: start: 20170411, end: 20170610
  12. OXINORM (OXYCODONE HYDROCHLORIDE) [Suspect]
     Active Substance: OXYCODONE HYDROCHLORIDE
     Indication: ANALGESIC THERAPY
     Dosage: 5 MG, PRN
     Route: 048
     Dates: start: 20170411, end: 20170610
  13. NOVAMIN (PROCHLORPERAZINE MALEATE) [Suspect]
     Active Substance: PROCHLORPERAZINE MALEATE
     Indication: NAUSEA
     Dosage: 5 MG, TID
     Route: 048
     Dates: start: 20170411, end: 20170610

REACTIONS (7)
  - Malignant neoplasm progression [Fatal]
  - Malignant ascites [None]
  - Pleural effusion [None]
  - Hypoalbuminaemia [None]
  - Respiratory failure [None]
  - Concomitant disease progression [None]
  - Non-small cell lung cancer [None]

NARRATIVE: CASE EVENT DATE: 20170610
